FAERS Safety Report 10047800 (Version 1)
Quarter: 2014Q1

REPORT INFORMATION
  Report Type: Spontaneous
  Country: DE (occurrence: DE)
  Receive Date: 20140331
  Receipt Date: 20140331
  Transmission Date: 20141002
  Serious: Yes (Other)
  Sender: FDA-Public Use
  Company Number: DE-UCBSA-115837

PATIENT
  Sex: Female

DRUGS (2)
  1. CIMZIA [Suspect]
  2. MTX [Suspect]

REACTIONS (1)
  - Erythema multiforme [Recovered/Resolved]
